FAERS Safety Report 6898087-X (Version None)
Quarter: 2010Q3

REPORT INFORMATION
  Report Type: 
  Country: None (occurrence: None)
  Receive Date: 20100802
  Receipt Date: 20070911
  Transmission Date: 20110219
  Serious: Yes (Other)
  Sender: FDA-Public Use
  Company Number: US-PFIZER INC-2007076739

PATIENT
  Sex: Female
  Weight: 87.1 kg

DRUGS (4)
  1. LYRICA [Suspect]
     Indication: FIBROMYALGIA
     Dates: start: 20070701, end: 20070101
  2. ACETAMINOPHEN AND HYDROCODONE BITARTRATE [Concomitant]
     Dosage: 10/375
  3. ATIVAN [Concomitant]
  4. DEXEDRINE ^MEDEVA^ [Concomitant]

REACTIONS (6)
  - BALANCE DISORDER [None]
  - CONFUSIONAL STATE [None]
  - EYE PAIN [None]
  - INJURY [None]
  - LACERATION [None]
  - PAIN [None]
